FAERS Safety Report 24122420 (Version 1)
Quarter: 2024Q3

REPORT INFORMATION
  Report Type: Report from Study
  Country: US (occurrence: US)
  Receive Date: 20240723
  Receipt Date: 20240723
  Transmission Date: 20241017
  Serious: Yes (Other)
  Sender: ABBVIE
  Company Number: US-ABBVIE-5842038

PATIENT
  Sex: Female

DRUGS (1)
  1. IMBRUVICA [Suspect]
     Active Substance: IBRUTINIB
     Indication: Chronic lymphocytic leukaemia
     Route: 048
     Dates: start: 20230413

REACTIONS (11)
  - Pancreatic neoplasm [Unknown]
  - Stomatitis [Unknown]
  - Lip injury [Unknown]
  - Diarrhoea [Unknown]
  - Bone pain [Unknown]
  - Hypoglycaemia [Unknown]
  - General physical health deterioration [Unknown]
  - Pain [Unknown]
  - Asthenia [Unknown]
  - Emotional disorder [Unknown]
  - Social problem [Unknown]
